FAERS Safety Report 6060487-8 (Version None)
Quarter: 2009Q1

REPORT INFORMATION
  Report Type: 
  Country: None (occurrence: None)
  Receive Date: 20090201
  Receipt Date: 20090126
  Transmission Date: 20090719
  Serious: Yes (Other)
  Sender: FDA-Public Use
  Company Number: CA-ASTRAZENECA-2009UW01817

PATIENT
  Age: 73 Year
  Sex: Female

DRUGS (7)
  1. ATACAND [Suspect]
     Indication: HYPERTENSION
     Route: 048
     Dates: start: 20081222
  2. BISOPROLOL [Concomitant]
  3. NORVASC [Concomitant]
  4. ALTACE [Concomitant]
  5. CRESTOR [Concomitant]
     Indication: BLOOD CHOLESTEROL INCREASED
     Route: 048
     Dates: start: 20070101
  6. RATIO-SALBUTAMOL [Concomitant]
  7. SPIRIVA [Concomitant]

REACTIONS (1)
  - URINE COLOUR ABNORMAL [None]
